FAERS Safety Report 6409843-6 (Version None)
Quarter: 2009Q4

REPORT INFORMATION
  Report Type: 
  Country: None (occurrence: None)
  Receive Date: 20091022
  Receipt Date: 20091013
  Transmission Date: 20100525
  Serious: Yes (Hospitalization)
  Sender: FDA-Public Use
  Company Number: DE-ABBOTT-09P-062-0603069-00

PATIENT
  Sex: Male
  Weight: 76 kg

DRUGS (12)
  1. HUMIRA [Suspect]
     Indication: POLYARTHRITIS
     Route: 058
  2. PREDNISOLONE [Concomitant]
     Indication: POLYARTHRITIS
     Dosage: 5 TO 7.5 MG PER DAY
  3. ATACAND16 PLUS [Concomitant]
     Indication: DRUG USE FOR UNKNOWN INDICATION
  4. METOPROLOL [Concomitant]
     Indication: DRUG USE FOR UNKNOWN INDICATION
  5. MOXONIDIN [Concomitant]
     Indication: DRUG USE FOR UNKNOWN INDICATION
  6. DECORTIN H [Concomitant]
     Indication: DRUG USE FOR UNKNOWN INDICATION
  7. ASPIRIN [Concomitant]
     Indication: DRUG USE FOR UNKNOWN INDICATION
  8. TAMSOLUSIN 0.4 [Concomitant]
     Indication: DRUG USE FOR UNKNOWN INDICATION
  9. VALORON 50/4 RET [Concomitant]
     Indication: DRUG USE FOR UNKNOWN INDICATION
  10. GABAPENTIN [Concomitant]
     Indication: DRUG USE FOR UNKNOWN INDICATION
  11. IDEOS [Concomitant]
     Indication: DRUG USE FOR UNKNOWN INDICATION
  12. PANTOPRAZOLE SODIUM [Concomitant]
     Indication: DRUG USE FOR UNKNOWN INDICATION

REACTIONS (3)
  - PLEURAL EFFUSION [None]
  - PULMONARY EMBOLISM [None]
  - SKIN LESION [None]
